FAERS Safety Report 19667382 (Version 1)
Quarter: 2021Q3

REPORT INFORMATION
  Report Type: Report from Study
  Country: RU (occurrence: RU)
  Receive Date: 20210806
  Receipt Date: 20210806
  Transmission Date: 20211014
  Serious: Yes (Life-Threatening, Hospitalization, Other)
  Sender: FDA-Public Use
  Company Number: RU-DSJP-DSJ-2021-123353

PATIENT
  Age: 59 Year
  Sex: Female

DRUGS (4)
  1. DURVALUMAB (DS?8201A STUDY) [Suspect]
     Active Substance: DURVALUMAB
     Indication: HER2 POSITIVE GASTRIC CANCER
     Dosage: 1120 MG, ONCE EVERY 3 WK
     Route: 042
     Dates: start: 20210707, end: 20210707
  2. TRASTUZUMAB DERUXTECAN. [Suspect]
     Active Substance: TRASTUZUMAB DERUXTECAN
     Indication: HER2 POSITIVE GASTRIC CANCER
     Dosage: 6.4 MG/KG, ONCE EVERY 3 WK
     Route: 042
     Dates: start: 20210707, end: 20210707
  3. BETALOC ZOC [Concomitant]
     Indication: HYPERTENSION
     Route: 048
     Dates: start: 20200501
  4. CAPECITABINE (DS?8201 STUDY) [Suspect]
     Active Substance: CAPECITABINE
     Indication: HER2 POSITIVE GASTRIC CANCER
     Dosage: 1000 MG/M2, ONCE EVERY 3 WK
     Route: 048
     Dates: start: 20210707, end: 20210721

REACTIONS (1)
  - Colitis [Not Recovered/Not Resolved]

NARRATIVE: CASE EVENT DATE: 20210721
